FAERS Safety Report 8759815 (Version 1)
Quarter: 2012Q4

REPORT INFORMATION
  Report Type: 
  Country: US (occurrence: US)
  Receive Date: 20120905
  Receipt Date: 20120905
  Transmission Date: 20130627
  Serious: Yes (Death)
  Sender: FDA-Public Use
  Company Number: US-ROCHE-1104158

PATIENT
  Sex: Female

DRUGS (7)
  1. AVASTIN [Suspect]
     Indication: PANCREATIC CARCINOMA
     Route: 065
     Dates: start: 20050503
  2. XELODA [Suspect]
     Indication: PANCREATIC CARCINOMA
     Route: 065
     Dates: start: 20050323, end: 20050518
  3. TARCEVA [Suspect]
     Indication: PANCREATIC CARCINOMA
     Route: 065
     Dates: start: 20050503
  4. GEMZAR [Concomitant]
     Route: 065
     Dates: start: 20050323, end: 20050518
  5. GEMZAR [Concomitant]
     Route: 065
     Dates: start: 200502
  6. TAXOTERE [Concomitant]
     Route: 065
     Dates: start: 20050323, end: 20050518
  7. OXALIPLATIN [Concomitant]
     Route: 065
     Dates: start: 200502

REACTIONS (3)
  - Death [Fatal]
  - Nausea [Unknown]
  - Vomiting [Unknown]
